FAERS Safety Report 5164549-9 (Version None)
Quarter: 2006Q4

REPORT INFORMATION
  Report Type: 
  Country: None (occurrence: None)
  Receive Date: 20061205
  Receipt Date: 20061128
  Transmission Date: 20070319
  Serious: Yes (Death, Hospitalization, Other)
  Sender: FDA-Public Use
  Company Number: FI-BRISTOL-MYERS SQUIBB COMPANY-13591680

PATIENT
  Age: 70 Year
  Sex: Male

DRUGS (1)
  1. DASATINIB [Suspect]
     Indication: CHRONIC MYELOID LEUKAEMIA
     Route: 048
     Dates: start: 20051124, end: 20061106

REACTIONS (4)
  - CARDIAC FAILURE [None]
  - CHRONIC MYELOID LEUKAEMIA [None]
  - DYSPNOEA [None]
  - MALIGNANT NEOPLASM PROGRESSION [None]
